FAERS Safety Report 7120902-5 (Version None)
Quarter: 2010Q4

REPORT INFORMATION
  Report Type: 
  Country: None (occurrence: None)
  Receive Date: 20101124
  Receipt Date: 20101112
  Transmission Date: 20110411
  Serious: Yes (Other)
  Sender: FDA-Public Use
  Company Number: ES-JNJFOC-20101105319

PATIENT
  Sex: Male
  Weight: 45 kg

DRUGS (2)
  1. METHYLPHENIDATE [Suspect]
     Indication: ATTENTION DEFICIT/HYPERACTIVITY DISORDER
     Dosage: (18 MG PLUS 27 MG) ONCE A DAY
     Route: 048
  2. METHYLPHENIDATE [Suspect]
     Route: 048

REACTIONS (2)
  - HYPERBILIRUBINAEMIA [None]
  - HYPERCHOLESTEROLAEMIA [None]
